FAERS Safety Report 6930419-6 (Version None)
Quarter: 2010Q3

REPORT INFORMATION
  Report Type: 
  Country: None (occurrence: None)
  Receive Date: 20100818
  Receipt Date: 20100809
  Transmission Date: 20110219
  Serious: Yes (Other)
  Sender: FDA-Public Use
  Company Number: US-GENZYME-FABR-1001518

PATIENT

DRUGS (2)
  1. FABRAZYME [Suspect]
     Indication: FABRY'S DISEASE
     Dosage: 75 MG, Q2W
     Route: 042
     Dates: start: 20060821
  2. FABRAZYME [Suspect]
     Dosage: 25 MG, UNK
     Route: 042
     Dates: start: 20090101

REACTIONS (1)
  - KIDNEY TRANSPLANT REJECTION [None]
